FAERS Safety Report 4293679-9 (Version None)
Quarter: 2004Q1

REPORT INFORMATION
  Report Type: 
  Country: None (occurrence: None)
  Receive Date: 20040212
  Receipt Date: 20031111
  Transmission Date: 20041129
  Serious: Yes (Death, Other)
  Sender: FDA-Public Use
  Company Number: US-BRISTOL-MYERS SQUIBB COMPANY-12433520

PATIENT
  Age: 49 Year
  Sex: Female

DRUGS (8)
  1. ABILIFY [Suspect]
     Indication: DELUSIONAL DISORDER, UNSPECIFIED TYPE
     Route: 048
     Dates: start: 20030501
  2. AMBIEN [Concomitant]
  3. VALIUM [Concomitant]
  4. LEXAPRO [Concomitant]
  5. LORTAB [Concomitant]
  6. FLOVENT [Concomitant]
  7. CLARINEX [Concomitant]
  8. CARISOPRODOL [Concomitant]

REACTIONS (4)
  - DRUG ABUSER [None]
  - HYPERTENSIVE HEART DISEASE [None]
  - MYOCARDIAL INFARCTION [None]
  - TREATMENT NONCOMPLIANCE [None]
